FAERS Safety Report 10305175 (Version 3)
Quarter: 2014Q4

REPORT INFORMATION
  Report Type: Report from Study
  Country: JP (occurrence: JP)
  Receive Date: 20140715
  Receipt Date: 20141231
  Transmission Date: 20150528
  Serious: Yes (Hospitalization)
  Sender: FDA-Public Use
  Company Number: JP-AMGEN-JPNOT2013077142

PATIENT
  Age: 73 Year
  Sex: Female
  Weight: 37 kg

DRUGS (15)
  1. OXYCONTIN [Concomitant]
     Active Substance: OXYCODONE HYDROCHLORIDE
     Dosage: 10 MG, QD
     Route: 048
     Dates: start: 20130218, end: 20130711
  2. ASPARA-CA [Concomitant]
     Active Substance: CALCIUM ASPARTATE
     Route: 048
     Dates: start: 20130709, end: 20130819
  3. FASLODEX [Concomitant]
     Active Substance: FULVESTRANT
     Dosage: UNK
     Route: 065
     Dates: start: 20130802
  4. FENTANYL CITRATE. [Concomitant]
     Active Substance: FENTANYL CITRATE
     Dosage: 8 MG, QD
     Route: 050
     Dates: start: 20130712, end: 20130808
  5. VITAMIN D3 [Concomitant]
     Active Substance: CHOLECALCIFEROL
     Route: 065
     Dates: start: 20130218, end: 20130415
  6. HYSRON [Concomitant]
     Active Substance: MEDROXYPROGESTERONE
     Dosage: UNKNOWN
     Route: 065
     Dates: start: 20130701, end: 20130801
  7. DENOSUMAB [Suspect]
     Active Substance: DENOSUMAB
     Indication: METASTASES TO BONE
     Dosage: 120 MG, UNK
     Route: 058
     Dates: start: 20130218
  8. CALCIUM [Concomitant]
     Active Substance: CALCIUM
     Indication: PRODUCT USED FOR UNKNOWN INDICATION
     Route: 065
     Dates: start: 20130218, end: 20130415
  9. ARIMIDEX [Concomitant]
     Active Substance: ANASTROZOLE
     Dosage: UNK
     Route: 065
     Dates: start: 20130225, end: 20130630
  10. CALCIUM LACTATE [Concomitant]
     Active Substance: CALCIUM LACTATE
     Dosage: 3 G, QD
     Route: 048
     Dates: start: 20130218, end: 20130317
  11. DUROTEP [Concomitant]
     Active Substance: FENTANYL
     Dosage: 16.8 MG, QD
     Route: 050
     Dates: start: 20130809, end: 20130821
  12. MAGLAX [Concomitant]
     Active Substance: MAGNESIUM OXIDE
     Dosage: 1980 MG, QD
     Route: 048
     Dates: start: 20130218, end: 20130819
  13. FENTOS [Concomitant]
     Active Substance: FENTANYL
     Dosage: 8 MG, QD
     Route: 050
     Dates: start: 20130712, end: 20130808
  14. ALFAROL [Concomitant]
     Active Substance: ALFACALCIDOL
     Dosage: 1 MUG, QD
     Route: 048
     Dates: start: 20130218, end: 20130317
  15. EDIROL [Concomitant]
     Active Substance: ELDECALCITOL
     Route: 048
     Dates: start: 20130709, end: 20130819

REACTIONS (3)
  - Dehydration [Recovering/Resolving]
  - Hypocalcaemia [Recovered/Resolved]
  - Decreased appetite [Not Recovered/Not Resolved]

NARRATIVE: CASE EVENT DATE: 20130228
